FAERS Safety Report 17940090 (Version 1)
Quarter: 2020Q2

REPORT INFORMATION
  Report Type: Spontaneous
  Country: IT (occurrence: IT)
  Receive Date: 20200625
  Receipt Date: 20200625
  Transmission Date: 20200714
  Serious: Yes (Hospitalization, Other)
  Sender: FDA-Public Use
  Company Number: IT-SA-2020SA157064

PATIENT

DRUGS (14)
  1. COUMADIN [Suspect]
     Active Substance: WARFARIN SODIUM
     Indication: ANTICOAGULANT THERAPY
     Dosage: UNK
     Route: 048
     Dates: start: 20200101, end: 20200529
  2. EUTIROX [Concomitant]
     Active Substance: LEVOTHYROXINE SODIUM
  3. CONTRAMAL [Concomitant]
     Active Substance: TRAMADOL HYDROCHLORIDE
  4. LASIX [Concomitant]
     Active Substance: FUROSEMIDE
  5. OMEPRAZOLE. [Concomitant]
     Active Substance: OMEPRAZOLE
  6. ENOXAPARIN SODIUM. [Suspect]
     Active Substance: ENOXAPARIN SODIUM
     Indication: THROMBOSIS PROPHYLAXIS
     Route: 058
     Dates: start: 20200101, end: 20200530
  7. LANTUS [Concomitant]
     Active Substance: INSULIN GLARGINE
  8. CARDICOR [Concomitant]
     Active Substance: BISOPROLOL
  9. DELTACORTENE [Concomitant]
     Active Substance: PREDNISONE
  10. ACETYLSALICYLIC ACID [Suspect]
     Active Substance: ASPIRIN
     Indication: ANTICOAGULANT THERAPY
     Dosage: UNK
     Route: 048
     Dates: start: 20200101, end: 20200529
  11. NOVORAPID [Concomitant]
     Active Substance: INSULIN ASPART
  12. DUROGESIC [Concomitant]
     Active Substance: FENTANYL
  13. KAYEXALATE [Concomitant]
     Active Substance: SODIUM POLYSTYRENE SULFONATE
  14. TORVAST [Concomitant]
     Active Substance: ATORVASTATIN

REACTIONS (3)
  - Dyspnoea [Unknown]
  - Respiratory failure [Unknown]
  - Cerebral haemorrhage [Unknown]

NARRATIVE: CASE EVENT DATE: 20200529
